FAERS Safety Report 9992918 (Version 1)
Quarter: 2014Q1

REPORT INFORMATION
  Report Type: Spontaneous
  Country: US (occurrence: US)
  Receive Date: 20140310
  Receipt Date: 20140310
  Transmission Date: 20141002
  Serious: No
  Sender: FDA-Public Use
  Company Number: US-ABBVIE-13P-163-1108812-00

PATIENT
  Age: 45 Year
  Sex: Female
  Weight: 68.1 kg

DRUGS (2)
  1. LUPRON DEPOT [Suspect]
     Indication: UTERINE LEIOMYOMA
     Dosage: ONE INJECTION ONLY
     Route: 050
     Dates: start: 20130424, end: 20130424
  2. ADVAIR [Concomitant]
     Indication: SEASONAL ALLERGY

REACTIONS (4)
  - Hypoaesthesia [Recovering/Resolving]
  - Pain in extremity [Recovering/Resolving]
  - Sensation of heaviness [Recovering/Resolving]
  - Electrocardiogram abnormal [Recovered/Resolved]
